FAERS Safety Report 5594211-X (Version None)
Quarter: 2008Q1

REPORT INFORMATION
  Report Type: 
  Country: None (occurrence: None)
  Receive Date: 20080115
  Receipt Date: 20071231
  Transmission Date: 20080703
  Serious: Yes (Hospitalization, Other)
  Sender: FDA-Public Use
  Company Number: APP200800001

PATIENT
  Age: 53 Year
  Sex: Male

DRUGS (10)
  1. METHOTREXATE INJECTION, USP (METHOTREXATE SODIUM) [Suspect]
     Indication: PROPHYLAXIS AGAINST GRAFT VERSUS HOST DISEASE
  2. CYCLOSPORINE [Suspect]
     Indication: PROPHYLAXIS AGAINST GRAFT VERSUS HOST DISEASE
     Dates: start: 20051201, end: 20060501
  3. PREDNISONE [Suspect]
     Indication: PROPHYLAXIS AGAINST GRAFT VERSUS HOST DISEASE
  4. ENALAPRIL MALEATE [Concomitant]
  5. BISOPROLOL FUMARATE [Concomitant]
  6. BACTRIM [Concomitant]
  7. ACYCLOVIR [Concomitant]
  8. MIANSERINE (MIANSERIN HYDROCHLORIDE) [Concomitant]
  9. FOLATE (FOLIC ACID) [Concomitant]
  10. MAGNESIUM (MAGNESIUM) [Concomitant]

REACTIONS (25)
  - 5'NUCLEOTIDASE INCREASED [None]
  - ACUTE GRAFT VERSUS HOST DISEASE IN SKIN [None]
  - ALANINE AMINOTRANSFERASE INCREASED [None]
  - ANAEMIA [None]
  - ANTI-PLATELET ANTIBODY POSITIVE [None]
  - ASPARTATE AMINOTRANSFERASE INCREASED [None]
  - BLOOD ALKALINE PHOSPHATASE INCREASED [None]
  - BLOOD BILIRUBIN INCREASED [None]
  - BLOOD LACTATE DEHYDROGENASE INCREASED [None]
  - COOMBS DIRECT TEST POSITIVE [None]
  - CYTOMEGALOVIRUS INFECTION [None]
  - DEEP VEIN THROMBOSIS [None]
  - DIPLOPIA [None]
  - DRUG INEFFECTIVE FOR UNAPPROVED INDICATION [None]
  - DRY MOUTH [None]
  - EYE DISORDER [None]
  - GLOMERULONEPHRITIS MINIMAL LESION [None]
  - GRAFT VERSUS HOST DISEASE [None]
  - HAPTOGLOBIN DECREASED [None]
  - MENINGIOMA [None]
  - NEPHROTIC SYNDROME [None]
  - RENAL FAILURE ACUTE [None]
  - RENAL TUBULAR NECROSIS [None]
  - RETICULOCYTOSIS [None]
  - THROMBOCYTOPENIA [None]
